FAERS Safety Report 7214838-9 (Version None)
Quarter: 2011Q1

REPORT INFORMATION
  Report Type: 
  Country: None (occurrence: None)
  Receive Date: 20110107
  Receipt Date: 20100325
  Transmission Date: 20110831
  Serious: No
  Sender: FDA-Public Use
  Company Number: A0852016A

PATIENT
  Age: 61 Year
  Sex: Female

DRUGS (11)
  1. LOVAZA [Suspect]
     Indication: BLOOD CHOLESTEROL INCREASED
     Dosage: 1CAP PER DAY
     Route: 048
  2. FLUOXETINE [Concomitant]
  3. AMLODIPINE [Concomitant]
  4. PROBIOTIC [Concomitant]
  5. MELATONIN [Concomitant]
  6. ZETIA [Concomitant]
  7. ASPIRIN [Concomitant]
  8. NIACIN [Concomitant]
  9. ATENOLOL [Concomitant]
  10. NITROGLYCERIN [Concomitant]
  11. MULTI-VITAMINS [Concomitant]

REACTIONS (1)
  - PHOTOPHOBIA [None]
